FAERS Safety Report 7641254-8 (Version None)
Quarter: 2011Q3

REPORT INFORMATION
  Report Type: 
  Country: None (occurrence: None)
  Receive Date: 20110728
  Receipt Date: 20110719
  Transmission Date: 20111222
  Serious: Yes (Other)
  Sender: FDA-Public Use
  Company Number: US-PERRIGO-11US005960

PATIENT
  Sex: Female
  Weight: 56.689 kg

DRUGS (2)
  1. IBUPROFEN [Suspect]
     Indication: PAIN
     Dosage: 200 MG, SINGLE
     Route: 048
     Dates: start: 20110716, end: 20110716
  2. ALCOHOL [Suspect]
     Indication: PRODUCT USED FOR UNKNOWN INDICATION
     Dosage: 2 BEVERAGES, ONCE
     Route: 048
     Dates: start: 20110716, end: 20110716

REACTIONS (3)
  - VOMITING [None]
  - AMNESIA [None]
  - RETCHING [None]
